FAERS Safety Report 20593385 (Version 2)
Quarter: 2022Q2

REPORT INFORMATION
  Report Type: Spontaneous
  Country: US (occurrence: US)
  Receive Date: 20220315
  Receipt Date: 20220428
  Transmission Date: 20220721
  Serious: Yes (Other)
  Sender: FDA-Public Use
  Company Number: US-NOVOPROD-898983

PATIENT
  Age: 66 Year
  Sex: Female
  Weight: 110.66 kg

DRUGS (2)
  1. OZEMPIC [Suspect]
     Active Substance: SEMAGLUTIDE
     Indication: Type 2 diabetes mellitus
     Dosage: UNK
     Route: 058
     Dates: start: 20211228
  2. OZEMPIC [Suspect]
     Active Substance: SEMAGLUTIDE
     Dosage: 0.5 MG, QW
     Route: 058

REACTIONS (7)
  - Facial bones fracture [Recovering/Resolving]
  - Epistaxis [Recovering/Resolving]
  - Fall [Recovering/Resolving]
  - Head injury [Recovering/Resolving]
  - Feeling hot [Recovering/Resolving]
  - Tinnitus [Recovering/Resolving]
  - Syncope [Recovering/Resolving]

NARRATIVE: CASE EVENT DATE: 20220202
